FAERS Safety Report 9050975 (Version 1)
Quarter: 2013Q1

REPORT INFORMATION
  Report Type: Spontaneous
  Country: US (occurrence: US)
  Receive Date: 20130205
  Receipt Date: 20130205
  Transmission Date: 20140127
  Serious: Yes (Hospitalization)
  Sender: FDA-Public Use
  Company Number: US-PFIZER INC-2013040558

PATIENT
  Age: 83 Year
  Sex: Female

DRUGS (2)
  1. REVATIO [Suspect]
     Dosage: UNK
  2. LETAIRIS [Suspect]
     Indication: COR PULMONALE CHRONIC
     Dosage: 5 MG, 1X/DAY
     Route: 048
     Dates: start: 20100119

REACTIONS (3)
  - Pneumonia [Unknown]
  - Syncope [Unknown]
  - Dehydration [Unknown]
